FAERS Safety Report 5597870-0 (Version None)
Quarter: 2007Q4

REPORT INFORMATION
  Report Type: 
  Country: None (occurrence: None)
  Receive Date: 20071221
  Receipt Date: 20071016
  Transmission Date: 20080405
  Serious: Yes (Hospitalization)
  Sender: FDA-Public Use
  Company Number: US200710001842

PATIENT
  Age: 12 Year
  Sex: Female

DRUGS (5)
  1. HUMALOG [Suspect]
     Dosage: AS NEEDED ; 55 U
  2. LEVOTHYROXINE SODIUM [Concomitant]
  3. FLUOXETINE [Concomitant]
  4. LEVEMIR (INSULIN DETEMIR) [Concomitant]
  5. METFORMIN HCL [Concomitant]

REACTIONS (5)
  - ABDOMINAL PAIN UPPER [None]
  - BLOOD GLUCOSE INCREASED [None]
  - DIABETIC KETOACIDOSIS [None]
  - HEADACHE [None]
  - THIRST [None]
